FAERS Safety Report 18135076 (Version 1)
Quarter: 2020Q3

REPORT INFORMATION
  Report Type: Spontaneous
  Country: US (occurrence: US)
  Receive Date: 20200811
  Receipt Date: 20200811
  Transmission Date: 20201103
  Serious: Yes (Other)
  Sender: FDA-Public Use
  Company Number: US-AKORN PHARMACEUTICALS-2020AKN01035

PATIENT
  Age: 47 Year
  Sex: Female

DRUGS (1)
  1. MYORISAN [Suspect]
     Active Substance: ISOTRETINOIN
     Dosage: UNK
     Dates: start: 20200221, end: 20200723

REACTIONS (2)
  - Unevaluable event [Unknown]
  - Tearfulness [Not Recovered/Not Resolved]

NARRATIVE: CASE EVENT DATE: 202007
